FAERS Safety Report 5374855-0 (Version None)
Quarter: 2007Q2

REPORT INFORMATION
  Report Type: 
  Country: None (occurrence: None)
  Receive Date: 20070629
  Receipt Date: 20070625
  Transmission Date: 20071010
  Serious: Yes (Other)
  Sender: FDA-Public Use
  Company Number: B0476507A

PATIENT
  Age: 0 Day
  Sex: Female
  Weight: 2.3 kg

DRUGS (4)
  1. PAXIL [Suspect]
     Indication: DRUG USE FOR UNKNOWN INDICATION
     Dosage: 20MG PER DAY
     Dates: start: 20070601, end: 20070619
  2. UNKNOWN NAME [Concomitant]
     Dosage: .25MG PER DAY
     Dates: start: 20070612, end: 20070619
  3. LORAZEPAM [Concomitant]
     Dosage: .25MG PER DAY
     Dates: start: 20070612, end: 20070619
  4. BUPIVACAINE HYDROCHLORIDE [Concomitant]

REACTIONS (3)
  - CAESAREAN SECTION [None]
  - DRUG EXPOSURE DURING PREGNANCY [None]
  - NEONATAL ASPHYXIA [None]
